FAERS Safety Report 17511176 (Version 1)
Quarter: 2020Q1

REPORT INFORMATION
  Report Type: Spontaneous
  Country: FR (occurrence: FR)
  Receive Date: 20200306
  Receipt Date: 20200306
  Transmission Date: 20200409
  Serious: Yes (Life-Threatening, Hospitalization)
  Sender: FDA-Public Use
  Company Number: NVSC2020FR059766

PATIENT
  Age: 63 Year
  Sex: Male

DRUGS (3)
  1. BROMAZEPAM [Suspect]
     Active Substance: BROMAZEPAM
     Indication: TOXICITY TO VARIOUS AGENTS
     Dosage: 180 MG, ONCE/SINGLE
     Route: 048
     Dates: start: 20190314, end: 20190314
  2. ZOLPIDEM [Suspect]
     Active Substance: ZOLPIDEM TARTRATE
     Indication: TOXICITY TO VARIOUS AGENTS
     Dosage: 140 MG, ONCE/SINGLE
     Route: 048
     Dates: start: 20190314, end: 20190314
  3. HEXAQUINE [Suspect]
     Active Substance: NIAOULI OIL\QUININE BENZOATE\THIAMINE HYDROCHLORIDE
     Indication: TOXICITY TO VARIOUS AGENTS
     Dosage: 6 DF, ONCE/SINGLE
     Route: 048
     Dates: start: 20190314, end: 20190314

REACTIONS (5)
  - Atrial fibrillation [Not Recovered/Not Resolved]
  - Hypovolaemia [Recovered/Resolved]
  - Coma [Recovered/Resolved]
  - Bradycardia [Recovered/Resolved]
  - Hypotension [Recovered/Resolved]

NARRATIVE: CASE EVENT DATE: 20190314
